FAERS Safety Report 8565431-7 (Version None)
Quarter: 2012Q3

REPORT INFORMATION
  Report Type: 
  Country: None (occurrence: None)
  Receive Date: 20120803
  Receipt Date: 20120727
  Transmission Date: 20120928
  Serious: Yes (Other)
  Sender: FDA-Public Use
  Company Number: US-PFIZER INC-2012136494

PATIENT
  Sex: Male

DRUGS (2)
  1. VIAGRA [Suspect]
     Dosage: 100 MG, 1 TABLET AS NEEDED
     Route: 048
  2. TOPAMAX [Concomitant]
     Dosage: UNK

REACTIONS (7)
  - BLOOD FOLLICLE STIMULATING HORMONE INCREASED [None]
  - HEADACHE [None]
  - BOWEL MOVEMENT IRREGULARITY [None]
  - CONSTIPATION [None]
  - BLOOD TESTOSTERONE DECREASED [None]
  - POLLAKIURIA [None]
  - ENDOCRINE DISORDER [None]
